FAERS Safety Report 17737415 (Version 8)
Quarter: 2020Q3

REPORT INFORMATION
  Report Type: Report from Study
  Country: None (occurrence: ES)
  Receive Date: 20200504
  Receipt Date: 20200719
  Transmission Date: 20201102
  Serious: Yes (Hospitalization, Other)
  Sender: FDA-Public Use
  Company Number: ES-ABBVIE-20K-144-3386734-00

PATIENT
  Age: 71 Year
  Sex: Male

DRUGS (3)
  1. MOVICOL [Concomitant]
     Active Substance: POLYETHYLENE GLYCOL 3350\POTASSIUM CHLORIDE\SODIUM BICARBONATE\SODIUM CHLORIDE
     Route: 048
     Dates: start: 20200511
  2. MOVICOL [Concomitant]
     Active Substance: POLYETHYLENE GLYCOL 3350\POTASSIUM CHLORIDE\SODIUM BICARBONATE\SODIUM CHLORIDE
     Indication: CONSTIPATION
     Route: 048
     Dates: start: 20200504, end: 20200510
  3. DUODOPA [Suspect]
     Active Substance: CARBIDOPA\LEVODOPA
     Indication: PARKINSON^S DISEASE
     Route: 050
     Dates: start: 20160121

REACTIONS (9)
  - Constipation [Recovered/Resolved]
  - Fluid intake reduced [Unknown]
  - Rectal haemorrhage [Recovered/Resolved]
  - Polyp [Recovered/Resolved]
  - Rectal discharge [Recovered/Resolved]
  - Diverticulum [Recovered/Resolved]
  - Bacterial test positive [Unknown]
  - Procedural complication [Unknown]
  - Diarrhoea [Unknown]

NARRATIVE: CASE EVENT DATE: 202004
